FAERS Safety Report 20258910 (Version 1)
Quarter: 2021Q4

REPORT INFORMATION
  Report Type: Report from Study
  Country: CA (occurrence: CA)
  Receive Date: 20211230
  Receipt Date: 20211230
  Transmission Date: 20220303
  Serious: Yes (Death, Other)
  Sender: FDA-Public Use
  Company Number: CA-HLS-202107477

PATIENT
  Age: 78 Year
  Sex: Male
  Weight: 60 kg

DRUGS (3)
  1. CLOZARIL [Suspect]
     Active Substance: CLOZAPINE
     Indication: Delirium
     Route: 048
     Dates: start: 20210310
  2. CLOZARIL [Suspect]
     Active Substance: CLOZAPINE
     Indication: Delirium
     Route: 048
     Dates: start: 20210310, end: 20211118
  3. CLOZARIL [Suspect]
     Active Substance: CLOZAPINE
     Indication: Delirium
     Dosage: 37.5 MG BID
     Route: 048
     Dates: start: 20210309

REACTIONS (4)
  - Off label use [Unknown]
  - Gait inability [Unknown]
  - Death [Fatal]
  - Delirium [Unknown]

NARRATIVE: CASE EVENT DATE: 20211118
